FAERS Safety Report 7638346-6 (Version None)
Quarter: 2011Q3

REPORT INFORMATION
  Report Type: 
  Country: None (occurrence: None)
  Receive Date: 20110720
  Receipt Date: 20110629
  Transmission Date: 20111222
  Serious: Yes (Hospitalization)
  Sender: FDA-Public Use
  Company Number: 2135225-2011-00067

PATIENT
  Age: 14 Year
  Sex: Male

DRUGS (1)
  1. AETHOXYSKLEROL [Suspect]
     Indication: OFF LABEL USE
     Dosage: LOCAL
     Dates: start: 20030307

REACTIONS (4)
  - TRACHEOSTOMY [None]
  - EPISTAXIS [None]
  - OEDEMA MOUTH [None]
  - TONGUE OEDEMA [None]
